FAERS Safety Report 9412637 (Version 1)
Quarter: 2013Q3

REPORT INFORMATION
  Report Type: Spontaneous
  Country: US (occurrence: US)
  Receive Date: 20130722
  Receipt Date: 20130722
  Transmission Date: 20140515
  Serious: No
  Sender: FDA-Public Use
  Company Number: US-TARO-2013P1004417

PATIENT
  Age: 71 Year
  Sex: Female
  Weight: 69.4 kg

DRUGS (5)
  1. CLOTRIMAZOLE AND BETAMETHASONE DIPROPIONATE [Suspect]
     Indication: LIP DRY
     Route: 061
     Dates: start: 201303, end: 20130401
  2. CLOTRIMAZOLE AND BETAMETHASONE DIPROPIONATE [Suspect]
     Indication: HYPOAESTHESIA
     Route: 061
     Dates: start: 201303, end: 20130401
  3. ZETIA [Concomitant]
  4. COREG [Concomitant]
  5. MICARDIS [Concomitant]

REACTIONS (1)
  - Drug ineffective [Not Recovered/Not Resolved]
